FAERS Safety Report 12982438 (Version 1)
Quarter: 2016Q4

REPORT INFORMATION
  Report Type: Spontaneous
  Country: US (occurrence: US)
  Receive Date: 20161128
  Receipt Date: 20161128
  Transmission Date: 20170207
  Serious: No
  Sender: FDA-Public Use
  Company Number: None

PATIENT
  Age: 45 Year
  Sex: Female

DRUGS (2)
  1. CAPECITABINE TAB 500MG [Suspect]
     Active Substance: CAPECITABINE
     Indication: BREAST CANCER FEMALE
  2. TYKERB [Concomitant]
     Active Substance: LAPATINIB DITOSYLATE

REACTIONS (2)
  - Somnolence [None]
  - Drug dose omission [None]

NARRATIVE: CASE EVENT DATE: 20161128
